FAERS Safety Report 25731272 (Version 1)
Quarter: 2025Q3

REPORT INFORMATION
  Report Type: Spontaneous
  Country: CN (occurrence: CN)
  Receive Date: 20250827
  Receipt Date: 20250827
  Transmission Date: 20251021
  Serious: Yes (Hospitalization)
  Sender: MERCK SHARP & DOHME LLC
  Company Number: CN-009507513-2323294

PATIENT
  Age: 75 Year
  Sex: Male
  Weight: 63 kg

DRUGS (5)
  1. CILASTATIN SODIUM\IMIPENEM [Suspect]
     Active Substance: CILASTATIN SODIUM\IMIPENEM
     Indication: Intestinal perforation
     Route: 041
     Dates: start: 20250807, end: 20250819
  2. TIGECYCLINE [Suspect]
     Active Substance: TIGECYCLINE
     Indication: Intestinal perforation
     Route: 041
     Dates: start: 20250807, end: 20250812
  3. SODIUM CHLORIDE [Concomitant]
     Active Substance: SODIUM CHLORIDE
     Indication: Medication dilution
     Dosage: 0.9%
     Route: 041
     Dates: start: 20250807, end: 20250819
  4. SODIUM CHLORIDE [Concomitant]
     Active Substance: SODIUM CHLORIDE
     Indication: Medication dilution
     Dosage: 0.9%
     Route: 041
     Dates: start: 20250807, end: 20250819
  5. DEXTROSE [Concomitant]
     Active Substance: DEXTROSE MONOHYDRATE
     Indication: Medication dilution
     Route: 041
     Dates: start: 20250807, end: 20250819

REACTIONS (4)
  - Dysbiosis [Recovering/Resolving]
  - Platelet count decreased [Recovered/Resolved]
  - Overdose [Unknown]
  - Diarrhoea [Recovering/Resolving]

NARRATIVE: CASE EVENT DATE: 20250807
